FAERS Safety Report 25935905 (Version 1)
Quarter: 2025Q4

REPORT INFORMATION
  Report Type: Spontaneous
  Country: GB (occurrence: GB)
  Receive Date: 20251017
  Receipt Date: 20251017
  Transmission Date: 20260117
  Serious: Yes (Hospitalization, Other)
  Sender: NOVO NORDISK
  Company Number: None

PATIENT
  Age: 35 Year
  Sex: Female
  Weight: 106 kg

DRUGS (2)
  1. WEGOVY [Suspect]
     Active Substance: SEMAGLUTIDE
     Indication: Weight control
     Dosage: 0.25 MG, QW
     Dates: start: 20250904
  2. MOUNJARO [Concomitant]
     Active Substance: TIRZEPATIDE
     Indication: Weight control
     Dosage: UNK
     Dates: start: 20250414, end: 20250828

REACTIONS (1)
  - Seizure [Recovered/Resolved]
